FAERS Safety Report 9321229 (Version 1)
Quarter: 2013Q2

REPORT INFORMATION
  Report Type: Spontaneous
  Country: US (occurrence: US)
  Receive Date: 20130531
  Receipt Date: 20130531
  Transmission Date: 20140414
  Serious: Yes (Other)
  Sender: FDA-Public Use
  Company Number: US-ROCHE-1228977

PATIENT
  Age: 35 Year
  Sex: Male

DRUGS (2)
  1. KLONOPIN [Suspect]
     Indication: PANIC ATTACK
     Route: 048
  2. MORPHINE [Suspect]
     Indication: PAIN
     Route: 065

REACTIONS (7)
  - Spinal fracture [Not Recovered/Not Resolved]
  - Constipation [Recovered/Resolved]
  - Diarrhoea [Not Recovered/Not Resolved]
  - Abdominal pain [Not Recovered/Not Resolved]
  - Abdominal rigidity [Not Recovered/Not Resolved]
  - Nausea [Not Recovered/Not Resolved]
  - Insomnia [Not Recovered/Not Resolved]
